FAERS Safety Report 18647159 (Version 2)
Quarter: 2020Q4

REPORT INFORMATION
  Report Type: Report from Study
  Country: US (occurrence: US)
  Receive Date: 20201222
  Receipt Date: 20201230
  Transmission Date: 20210114
  Serious: Yes (Death, Other)
  Sender: FDA-Public Use
  Company Number: US-ROCHE-2719376

PATIENT
  Age: 63 Year
  Sex: Male
  Weight: 121.2 kg

DRUGS (4)
  1. IBRUTINIB [Suspect]
     Active Substance: IBRUTINIB
     Indication: CHRONIC LYMPHOCYTIC LEUKAEMIA
     Dosage: 420 MG PO QD ON DAYS 1-28, CYCLES 1-19,?DATE OF LAST ADMINISTERED DOSE: 09/NOV/2020
     Route: 048
     Dates: start: 20200917
  2. OBINUTUZUMAB. [Suspect]
     Active Substance: OBINUTUZUMAB
     Indication: CHRONIC LYMPHOCYTIC LEUKAEMIA
     Route: 042
     Dates: start: 20200917
  3. OBINUTUZUMAB. [Suspect]
     Active Substance: OBINUTUZUMAB
     Route: 042
  4. OBINUTUZUMAB. [Suspect]
     Active Substance: OBINUTUZUMAB
     Dosage: ON DAY 8, CYCLE 1?1000 MG IV ON DAY 15, CYCLE 1?1000 MG IV ON DAY 1, CYCLE 2-6?DATE OF LAST ADMINIST
     Route: 042

REACTIONS (2)
  - Neutrophil count decreased [Recovered/Resolved]
  - COVID-19 [Fatal]

NARRATIVE: CASE EVENT DATE: 20201110
